FAERS Safety Report 23217579 (Version 5)
Quarter: 2024Q2

REPORT INFORMATION
  Report Type: Report from Study
  Country: CA (occurrence: CA)
  Receive Date: 20231122
  Receipt Date: 20240408
  Transmission Date: 20240716
  Serious: Yes (Other)
  Sender: FDA-Public Use
  Company Number: CA-JNJFOC-20230807238

PATIENT
  Age: 18 Year
  Sex: Female
  Weight: 57 kg

DRUGS (5)
  1. REMICADE [Suspect]
     Active Substance: INFLIXIMAB
     Indication: Crohn^s disease
     Dosage: EXPIRY: FEB-2026?V2: EXPIRY DATE: MAR-2026
     Route: 041
     Dates: start: 20210518
  2. REMICADE [Suspect]
     Active Substance: INFLIXIMAB
     Dosage: 0.2./6 AND THEN EVERY 4 WEEKS?IV RELOAD REQUESTED
     Route: 041
  3. REMICADE [Suspect]
     Active Substance: INFLIXIMAB
     Dosage: ON 16-NOV-2023, THE PATIENT RECEIVED 26TH INFLIXIMAB, RECOMBINANT INFUSION AT DOSE OF 600 MG AND COM
     Route: 041
  4. REMICADE [Suspect]
     Active Substance: INFLIXIMAB
     Dosage: EXPIRY: 30-SEP-2026
     Route: 041
  5. METHOTREXATE [Suspect]
     Active Substance: METHOTREXATE
     Indication: Product used for unknown indication
     Route: 065
     Dates: end: 202303

REACTIONS (12)
  - Dermatitis [Recovering/Resolving]
  - Crohn^s disease [Recovering/Resolving]
  - Cystitis [Recovered/Resolved]
  - Skin infection [Recovered/Resolved]
  - Ear infection [Recovered/Resolved]
  - Psoriasis [Not Recovered/Not Resolved]
  - Pyrexia [Unknown]
  - Swelling face [Recovered/Resolved]
  - Dysphagia [Unknown]
  - Gastrooesophageal reflux disease [Recovered/Resolved]
  - Drug level abnormal [Unknown]
  - Product dose omission issue [Unknown]

NARRATIVE: CASE EVENT DATE: 20220101
